FAERS Safety Report 15477603 (Version 1)
Quarter: 2018Q4

REPORT INFORMATION
  Report Type: Spontaneous
  Country: US (occurrence: US)
  Receive Date: 20181002
  Receipt Date: 20181002
  Transmission Date: 20190205
  Serious: Yes (Life-Threatening, Hospitalization, Disabling, Other)
  Sender: FDA-Public Use
  Company Number: None

PATIENT
  Age: 48 Year
  Sex: Female
  Weight: 51 kg

DRUGS (6)
  1. VELETRI (EPOPROSTENOL SODIUM) [Suspect]
     Active Substance: EPOPROSTENOL SODIUM
     Indication: PULMONARY HYPERTENSION
     Dosage: ?          OTHER FREQUENCY:CONTINUOUSLY;?
     Route: 042
  2. REGLAN [Concomitant]
     Active Substance: METOCLOPRAMIDE HYDROCHLORIDE
  3. EPOETIN [Concomitant]
     Active Substance: ERYTHROPOIETIN
  4. CALCIUM [Concomitant]
     Active Substance: CALCIUM
  5. HEPARIN [Concomitant]
     Active Substance: HEPARIN SODIUM
  6. VITAMIN C [Concomitant]
     Active Substance: ASCORBIC ACID

REACTIONS (25)
  - Malnutrition [None]
  - Abdominal distension [None]
  - Diarrhoea [None]
  - Flushing [None]
  - Blood pressure decreased [None]
  - Dialysis [None]
  - Muscle atrophy [None]
  - Dizziness [None]
  - Burning sensation [None]
  - Restlessness [None]
  - Heart rate increased [None]
  - Oedema [None]
  - Tremor [None]
  - Back pain [None]
  - Feeling of body temperature change [None]
  - Headache [None]
  - Dyspnoea [None]
  - Respiratory rate decreased [None]
  - Heart rate decreased [None]
  - Anxiety [None]
  - Loss of consciousness [None]
  - Cardiac arrest [None]
  - Chest pain [None]
  - Vomiting [None]
  - Mobility decreased [None]

NARRATIVE: CASE EVENT DATE: 20180817
